FAERS Safety Report 18325626 (Version 15)
Quarter: 2023Q1

REPORT INFORMATION
  Report Type: Report from Study
  Country: CL (occurrence: CL)
  Receive Date: 20200929
  Receipt Date: 20230324
  Transmission Date: 20230418
  Serious: Yes (Hospitalization, Other)
  Sender: FDA-Public Use
  Company Number: NVSC2020CL059306

PATIENT
  Age: 55 Year
  Sex: Female

DRUGS (6)
  1. SANDOSTATIN LAR DEPOT [Suspect]
     Active Substance: OCTREOTIDE ACETATE
     Indication: Pituitary tumour
     Dosage: 20 MG, QMO (SOLUTION)
     Route: 030
     Dates: start: 201708
  2. SANDOSTATIN LAR DEPOT [Suspect]
     Active Substance: OCTREOTIDE ACETATE
     Indication: Brain neoplasm
     Dosage: 20 MG, QMO
     Route: 030
     Dates: start: 201708
  3. SANDOSTATIN LAR DEPOT [Suspect]
     Active Substance: OCTREOTIDE ACETATE
     Indication: Pituitary enlargement
     Dosage: 20 MG, (EVERY 45 DAYS) (INJECTABLE SOLUTION/ AMPOULE)
     Route: 030
     Dates: start: 201708
  4. SANDOSTATIN LAR DEPOT [Suspect]
     Active Substance: OCTREOTIDE ACETATE
     Indication: Neuroendocrine tumour
     Dosage: 20 MG, (EVERY 45 DAYS) (INJECTABLE SOLUTION)
     Route: 030
     Dates: start: 201708
  5. SANDOSTATIN LAR DEPOT [Suspect]
     Active Substance: OCTREOTIDE ACETATE
     Dosage: 20 MG, (EVERY 45 DAYS) (INJECTABLE SOLUTION)
     Route: 030
     Dates: start: 20170801
  6. SANDOSTATIN LAR DEPOT [Suspect]
     Active Substance: OCTREOTIDE ACETATE
     Dosage: UNK
     Route: 065
     Dates: start: 20200319

REACTIONS (24)
  - Inflammation [Unknown]
  - Loss of consciousness [Unknown]
  - Illness [Unknown]
  - Stress [Unknown]
  - Decompression sickness [Unknown]
  - Fall [Unknown]
  - Photopsia [Unknown]
  - Depression [Unknown]
  - Headache [Unknown]
  - Vomiting [Unknown]
  - Dizziness [Unknown]
  - Neoplasm [Unknown]
  - Memory impairment [Unknown]
  - Malaise [Unknown]
  - Gait inability [Unknown]
  - Pyrexia [Unknown]
  - Ill-defined disorder [Unknown]
  - Adenoma benign [Recovering/Resolving]
  - Thinking abnormal [Unknown]
  - Dysphonia [Unknown]
  - Nasopharyngitis [Unknown]
  - Throat clearing [Unknown]
  - Wrong product administered [Unknown]
  - Inappropriate schedule of product administration [Unknown]

NARRATIVE: CASE EVENT DATE: 20170801
